FAERS Safety Report 18770704 (Version 1)
Quarter: 2021Q1

REPORT INFORMATION
  Report Type: Spontaneous
  Country: US (occurrence: US)
  Receive Date: 20210122
  Receipt Date: 20210122
  Transmission Date: 20210419
  Serious: No
  Sender: FDA-Public Use
  Company Number: US-JNJFOC-20210123723

PATIENT
  Sex: Female

DRUGS (7)
  1. INVEGA SUSTENNA [Suspect]
     Active Substance: PALIPERIDONE PALMITATE
  2. INVEGA [Suspect]
     Active Substance: PALIPERIDONE
     Indication: SCHIZOAFFECTIVE DISORDER
     Route: 048
  3. ASPRIN [Concomitant]
     Active Substance: ASPIRIN
     Route: 065
  4. INVEGA SUSTENNA [Suspect]
     Active Substance: PALIPERIDONE PALMITATE
     Indication: SCHIZOAFFECTIVE DISORDER
     Route: 030
  5. INVEGA SUSTENNA [Suspect]
     Active Substance: PALIPERIDONE PALMITATE
  6. HALOPERIDOL. [Concomitant]
     Active Substance: HALOPERIDOL
     Route: 065
  7. INVEGA [Suspect]
     Active Substance: PALIPERIDONE
     Route: 048

REACTIONS (7)
  - Blood cholesterol increased [Unknown]
  - Restlessness [Unknown]
  - Weight increased [Unknown]
  - Injection site mass [Not Recovered/Not Resolved]
  - Injection site reaction [Unknown]
  - Weight decreased [Unknown]
  - Sleep disorder [Unknown]
